FAERS Safety Report 9163755 (Version 1)
Quarter: 2013Q1

REPORT INFORMATION
  Report Type: Report from Study
  Country: DE (occurrence: DE)
  Receive Date: 20130314
  Receipt Date: 20130314
  Transmission Date: 20140127
  Serious: Yes (Hospitalization, Other)
  Sender: FDA-Public Use
  Company Number: DE-ABBOTT-13P-062-1061715-00

PATIENT
  Age: 41 Year
  Sex: Male

DRUGS (1)
  1. KALETRA [Suspect]
     Indication: HIV INFECTION
     Dosage: 2X2 PER DAY
     Dates: start: 20110620

REACTIONS (16)
  - Gamma-glutamyltransferase increased [Unknown]
  - Ataxia [Unknown]
  - Aspartate aminotransferase increased [Unknown]
  - Alanine aminotransferase increased [Unknown]
  - Fatigue [Unknown]
  - Blood creatine phosphokinase increased [Unknown]
  - Muscular weakness [Unknown]
  - Blood cholesterol increased [Unknown]
  - Low density lipoprotein increased [Unknown]
  - Gamma-glutamyltransferase increased [Unknown]
  - Fatigue [Unknown]
  - Mobility decreased [Unknown]
  - Back pain [Unknown]
  - Blood lactate dehydrogenase increased [Unknown]
  - Gamma-glutamyltransferase increased [Unknown]
  - Nausea [Unknown]
